FAERS Safety Report 6144925-8 (Version None)
Quarter: 2009Q2

REPORT INFORMATION
  Report Type: 
  Country: None (occurrence: None)
  Receive Date: 20090406
  Receipt Date: 20090320
  Transmission Date: 20091009
  Serious: Yes (Death, Hospitalization)
  Sender: FDA-Public Use
  Company Number: CH-MERCK-0903CHE00018

PATIENT
  Age: 43 Year
  Sex: Male

DRUGS (12)
  1. PRIMAXIN [Suspect]
     Route: 042
     Dates: start: 20090206, end: 20090211
  2. AZACTAM [Suspect]
     Indication: ACUTE GENERALISED EXANTHEMATOUS PUSTULOSIS
     Route: 042
     Dates: start: 20090211, end: 20090211
  3. ROCEPHIN [Concomitant]
     Indication: ACUTE GENERALISED EXANTHEMATOUS PUSTULOSIS
     Route: 042
     Dates: start: 20090204, end: 20090206
  4. FLAGYL [Concomitant]
     Indication: ACUTE GENERALISED EXANTHEMATOUS PUSTULOSIS
     Route: 065
     Dates: start: 20090204, end: 20090206
  5. FLAGYL [Concomitant]
     Route: 042
     Dates: start: 20090213
  6. CANCIDAS [Concomitant]
     Indication: ACUTE GENERALISED EXANTHEMATOUS PUSTULOSIS
     Route: 042
     Dates: start: 20090211, end: 20090211
  7. CYMEVENE IV [Concomitant]
     Indication: ACUTE GENERALISED EXANTHEMATOUS PUSTULOSIS
     Route: 042
     Dates: start: 20090213, end: 20090213
  8. SOLU-CORTEF [Concomitant]
     Indication: ACUTE GENERALISED EXANTHEMATOUS PUSTULOSIS
     Route: 065
     Dates: start: 20090214, end: 20090220
  9. KONAKION [Concomitant]
     Route: 042
  10. FOLVITE [Concomitant]
     Route: 065
  11. NEXIUM [Concomitant]
     Route: 065
  12. TAVANIC [Concomitant]
     Route: 065
     Dates: start: 20090211, end: 20090215

REACTIONS (2)
  - ACUTE GENERALISED EXANTHEMATOUS PUSTULOSIS [None]
  - TOXIC EPIDERMAL NECROLYSIS [None]
